FAERS Safety Report 12226585 (Version 3)
Quarter: 2019Q1

REPORT INFORMATION
  Report Type: Spontaneous
  Country: AU (occurrence: AU)
  Receive Date: 20160331
  Receipt Date: 20190202
  Transmission Date: 20190417
  Serious: Yes (Other)
  Sender: FDA-Public Use
  Company Number: PHHY2016AU039690

PATIENT
  Sex: Male

DRUGS (11)
  1. CICLOSPORIN [Suspect]
     Active Substance: CYCLOSPORINE
     Indication: PYODERMA GANGRENOSUM
     Dosage: UNK
     Route: 048
     Dates: start: 20151218, end: 20160418
  2. MYCOPHENOLATE [Suspect]
     Active Substance: MYCOPHENOLIC ACID
     Dosage: UNK
     Route: 048
     Dates: start: 20180629, end: 20180824
  3. COSENTYX [Suspect]
     Active Substance: SECUKINUMAB
     Indication: PYODERMA GANGRENOSUM
     Dosage: WEEKLY FOR FIRST 5 DOSE THEN MONTHLY
     Route: 058
     Dates: start: 20160422, end: 201608
  4. ENDEP [Concomitant]
     Active Substance: AMITRIPTYLINE HYDROCHLORIDE
     Indication: PAIN
     Dosage: UNK
     Route: 048
     Dates: start: 2015, end: 2016
  5. PREGABALIN. [Concomitant]
     Active Substance: PREGABALIN
     Indication: PAIN
     Dosage: UNK UNK, QD
     Route: 048
     Dates: start: 2015, end: 2016
  6. TACROLIMUS. [Suspect]
     Active Substance: TACROLIMUS
     Indication: PYODERMA GANGRENOSUM
     Dosage: UNK
     Route: 048
     Dates: start: 2015, end: 201610
  7. METHYLPREDNISOLONE. [Suspect]
     Active Substance: METHYLPREDNISOLONE
     Indication: PYODERMA GANGRENOSUM
     Dosage: 1 G, QD FOR 3 DAYS
     Route: 042
  8. MYCOPHENOLATE [Suspect]
     Active Substance: MYCOPHENOLIC ACID
     Indication: PYODERMA GANGRENOSUM
     Dosage: UNK
     Route: 065
     Dates: start: 20150316
  9. PREDNISOLONE. [Suspect]
     Active Substance: PREDNISOLONE
     Indication: PYODERMA GANGRENOSUM
     Dosage: 1000 MG, OVER THREE DAYS
     Route: 048
  10. PREDNISOLONE. [Suspect]
     Active Substance: PREDNISOLONE
     Dosage: 75 MG, QD
     Route: 065
  11. STELARA [Suspect]
     Active Substance: USTEKINUMAB
     Indication: PYODERMA GANGRENOSUM
     Dosage: 2 DOSES
     Route: 065

REACTIONS (11)
  - Pain [Unknown]
  - Drug ineffective for unapproved indication [Not Recovered/Not Resolved]
  - Cushingoid [Unknown]
  - Pyoderma gangrenosum [Unknown]
  - Skin discolouration [Unknown]
  - Adjustment disorder with depressed mood [Unknown]
  - Increased steroid activity [Unknown]
  - Disease progression [Unknown]
  - Ulcer [Unknown]
  - Acute kidney injury [Unknown]
  - Product use in unapproved indication [Unknown]
